FAERS Safety Report 4719587-4 (Version None)
Quarter: 2005Q3

REPORT INFORMATION
  Report Type: 
  Country: None (occurrence: None)
  Receive Date: 20050721
  Receipt Date: 20040128
  Transmission Date: 20060218
  Serious: No
  Sender: FDA-Public Use
  Company Number: US-GLAXOSMITHKLINE-A0495359A

PATIENT
  Age: 80 Year
  Sex: Male

DRUGS (8)
  1. AVANDIA [Suspect]
     Dosage: 8MG PER DAY
     Route: 048
     Dates: end: 20030301
  2. AVAPRO [Concomitant]
  3. GLUCOPHAGE [Concomitant]
  4. PRAVACHOL [Concomitant]
  5. LOPID [Concomitant]
  6. NEURONTIN [Concomitant]
  7. TENORMIN [Concomitant]
  8. ASPIRIN [Concomitant]

REACTIONS (1)
  - WEIGHT INCREASED [None]
